FAERS Safety Report 7995248-3 (Version None)
Quarter: 2011Q4

REPORT INFORMATION
  Report Type: 
  Country: None (occurrence: None)
  Receive Date: 20111220
  Receipt Date: 20111220
  Transmission Date: 20120403
  Serious: Yes (Life-Threatening, Hospitalization)
  Sender: FDA-Public Use
  Company Number: None

PATIENT
  Sex: Female
  Weight: 135.62 kg

DRUGS (4)
  1. SEPTRA DS [Suspect]
     Indication: CELLULITIS
     Dosage: 800-160 MG
     Route: 048
     Dates: start: 20111130, end: 20111201
  2. SEPTRA DS [Suspect]
     Indication: DIABETIC FOOT INFECTION
     Dosage: 800-160 MG
     Route: 048
     Dates: start: 20111130, end: 20111201
  3. DOXYCYCLINE [Concomitant]
     Indication: DIABETIC FOOT INFECTION
     Dosage: 100 MG
     Route: 048
     Dates: start: 20111130, end: 20111201
  4. DOXYCYCLINE [Concomitant]
     Indication: CELLULITIS
     Dosage: 100 MG
     Route: 048
     Dates: start: 20111130, end: 20111201

REACTIONS (2)
  - ANGIOEDEMA [None]
  - MENTAL STATUS CHANGES [None]
